FAERS Safety Report 8612467-3 (Version None)
Quarter: 2012Q3

REPORT INFORMATION
  Report Type: 
  Country: None (occurrence: None)
  Receive Date: 20120822
  Receipt Date: 20120811
  Transmission Date: 20120928
  Serious: Yes (Hospitalization)
  Sender: FDA-Public Use
  Company Number: US-PERRIGO-12US007149

PATIENT
  Sex: Male
  Weight: 108.39 kg

DRUGS (2)
  1. FLOMAX [Concomitant]
     Indication: PROSTATOMEGALY
     Dosage: UNKNOWN, UNKNOWN
     Route: 048
  2. FLU + SEVERE COLD + COUGH NIGHTTIME 964 [Suspect]
     Indication: NASOPHARYNGITIS
     Dosage: ONE PACKET, SINGLE
     Route: 048
     Dates: start: 20120713, end: 20120713

REACTIONS (3)
  - CONSTIPATION [None]
  - URINARY INCONTINENCE [None]
  - URINARY RETENTION [None]
